FAERS Safety Report 5274514-9 (Version None)
Quarter: 2007Q1

REPORT INFORMATION
  Report Type: 
  Country: None (occurrence: None)
  Receive Date: 20070323
  Receipt Date: 20070312
  Transmission Date: 20070707
  Serious: Yes (Other)
  Sender: FDA-Public Use
  Company Number: NO-PFIZER INC-2007021089

PATIENT
  Sex: Female

DRUGS (1)
  1. DETRUSITOL SR [Suspect]
     Route: 048

REACTIONS (3)
  - BRAIN OEDEMA [None]
  - DRUG INEFFECTIVE [None]
  - DRY MOUTH [None]
